FAERS Safety Report 14256148 (Version 1)
Quarter: 2017Q4

REPORT INFORMATION
  Report Type: Spontaneous
  Country: US (occurrence: US)
  Receive Date: 20171206
  Receipt Date: 20171206
  Transmission Date: 20180321
  Serious: Yes (Death, Hospitalization, Other)
  Sender: FDA-Public Use
  Company Number: US-MYLANLABS-2017M1076982

PATIENT
  Age: 77 Year
  Sex: Male

DRUGS (1)
  1. METOPROLOL. [Suspect]
     Active Substance: METOPROLOL
     Indication: PRODUCT USED FOR UNKNOWN INDICATION
     Dosage: UNK
     Route: 065

REACTIONS (7)
  - Atrioventricular block [Fatal]
  - Coma [Fatal]
  - Respiratory depression [Fatal]
  - Hypotension [Fatal]
  - Bradycardia [Fatal]
  - Toxicity to various agents [Fatal]
  - Depressed level of consciousness [Fatal]
